FAERS Safety Report 5107075-5 (Version None)
Quarter: 2006Q3

REPORT INFORMATION
  Report Type: 
  Country: None (occurrence: None)
  Receive Date: 20060913
  Receipt Date: 20060829
  Transmission Date: 20061208
  Serious: Yes (Hospitalization)
  Sender: FDA-Public Use
  Company Number: 2006001307

PATIENT
  Age: 57 Year
  Sex: Male
  Weight: 93.441 kg

DRUGS (12)
  1. ERLOTINIB [Suspect]
     Indication: RECTAL CANCER
     Dosage: 50 MG, DAYS 1-14 OF CYCLE (QD), ORAL
     Route: 048
     Dates: start: 20060522
  2. BEVACIZUMAB                            (INJECTION FOR INFUSION) [Suspect]
     Dosage: 5 MG/KG, DAY 1 OF CYCLE (QD), INTRAVENOUS
     Route: 042
     Dates: start: 20060522, end: 20060605
  3. FLUOROURACIL [Suspect]
     Indication: RECTAL CANCER
     Dosage: 168.75 MG/ML, DAYS 1-14 OF CYCLE (QD), INTRAVENOUS
     Route: 042
     Dates: start: 20060522, end: 20060619
  4. RADIATION THERAPY [Concomitant]
  5. ATIVAN [Concomitant]
  6. COMPAZINE [Concomitant]
  7. FOLIC ACID [Concomitant]
  8. HYDROCHLOROTHIAZIDE [Concomitant]
  9. POTASSIUM CHLORIDE [Concomitant]
  10. MIRACLE MOUTHWASH [Concomitant]
  11. TOPROL-XL [Concomitant]
  12. ZOFRAN [Concomitant]

REACTIONS (13)
  - ALANINE AMINOTRANSFERASE INCREASED [None]
  - ASPARTATE AMINOTRANSFERASE INCREASED [None]
  - CHILLS [None]
  - COLITIS [None]
  - DIARRHOEA [None]
  - HAEMATOCRIT DECREASED [None]
  - HAEMOGLOBIN DECREASED [None]
  - INFECTION [None]
  - LYMPHOPENIA [None]
  - PYREXIA [None]
  - RECTAL HAEMORRHAGE [None]
  - TREMOR [None]
  - WHITE BLOOD CELL COUNT DECREASED [None]
